FAERS Safety Report 10718122 (Version 2)
Quarter: 2015Q1

REPORT INFORMATION
  Report Type: Spontaneous
  Country: BE (occurrence: BE)
  Receive Date: 20150117
  Receipt Date: 20150319
  Transmission Date: 20150721
  Serious: Yes (Hospitalization, Other)
  Sender: FDA-Public Use
  Company Number: PHHY2015BE002867

PATIENT
  Age: 40 Year
  Sex: Male

DRUGS (4)
  1. NIZORAL [Concomitant]
     Active Substance: KETOCONAZOLE
     Indication: PRODUCT USED FOR UNKNOWN INDICATION
     Route: 065
     Dates: start: 20140902, end: 201412
  2. DERMASOLE [Concomitant]
     Indication: PRODUCT USED FOR UNKNOWN INDICATION
     Route: 065
     Dates: start: 20140902, end: 201412
  3. GILENYA [Suspect]
     Active Substance: FINGOLIMOD HYDROCHLORIDE
     Indication: MULTIPLE SCLEROSIS
     Dosage: 0.5 MG, QD
     Route: 048
     Dates: start: 2012
  4. ASPEGIC [Concomitant]
     Active Substance: ASPIRIN DL-LYSINE
     Indication: PRODUCT USED FOR UNKNOWN INDICATION
     Route: 065

REACTIONS (14)
  - Generalised tonic-clonic seizure [Recovered/Resolved]
  - Dizziness [Unknown]
  - Anxiety [Recovering/Resolving]
  - Loss of consciousness [Unknown]
  - Amnesia [Unknown]
  - Feeling abnormal [Unknown]
  - Partial seizures with secondary generalisation [Unknown]
  - Speech disorder [Unknown]
  - Incoherent [Unknown]
  - Pneumonia staphylococcal [Unknown]
  - Hemiparesis [Unknown]
  - Syncope [Unknown]
  - Confusional state [Unknown]
  - Agitation [Unknown]

NARRATIVE: CASE EVENT DATE: 20141225
